FAERS Safety Report 12464774 (Version 2)
Quarter: 2016Q2

REPORT INFORMATION
  Report Type: Spontaneous
  Country: TR (occurrence: TR)
  Receive Date: 20160614
  Receipt Date: 20160621
  Transmission Date: 20160815
  Serious: Yes (Death, Life-Threatening)
  Sender: FDA-Public Use
  Company Number: TR-PFIZER INC-2016299370

PATIENT
  Age: 70 Day
  Sex: Male

DRUGS (4)
  1. CANAKINUMAB [Suspect]
     Active Substance: CANAKINUMAB
     Indication: MEVALONIC ACIDURIA
     Dosage: UNK
  2. PREDNISOLONE. [Suspect]
     Active Substance: PREDNISOLONE
     Indication: MEVALONIC ACIDURIA
     Dosage: 2 MG/KG, DAILY
  3. COENZYME Q10 [Concomitant]
     Active Substance: UBIDECARENONE
     Indication: MEVALONIC ACIDURIA
     Dosage: 5 MG/KG, DAILY
  4. IBUPROFEN. [Suspect]
     Active Substance: IBUPROFEN
     Indication: MEVALONIC ACIDURIA
     Dosage: UNK

REACTIONS (1)
  - Drug ineffective [Fatal]
